FAERS Safety Report 15288377 (Version 1)
Quarter: 2018Q3

REPORT INFORMATION
  Report Type: Spontaneous
  Country: US (occurrence: US)
  Receive Date: 20180802
  Receipt Date: 20180802
  Transmission Date: 20181010
  Serious: No
  Sender: FDA-Public Use
  Company Number: None

PATIENT
  Age: 64 Year
  Sex: Female
  Weight: 120.66 kg

DRUGS (2)
  1. CLONAZEPAM 1MG ACCORD [Suspect]
     Active Substance: CLONAZEPAM
     Indication: ANXIETY
     Route: 048
     Dates: start: 20180619, end: 20180718
  2. CLONAZEPAM 1MG ACCORD [Suspect]
     Active Substance: CLONAZEPAM
     Indication: DEPRESSION
     Route: 048
     Dates: start: 20180619, end: 20180718

REACTIONS (6)
  - Somnolence [None]
  - Insomnia [None]
  - Stress [None]
  - Drug ineffective [None]
  - Seizure [None]
  - Anxiety [None]

NARRATIVE: CASE EVENT DATE: 20180619
